FAERS Safety Report 9953267 (Version 1)
Quarter: 2014Q1

REPORT INFORMATION
  Report Type: Report from Study
  Country: US (occurrence: US)
  Receive Date: 20140304
  Receipt Date: 20140304
  Transmission Date: 20141002
  Serious: No
  Sender: FDA-Public Use
  Company Number: US-ABBVIE-13P-163-1072748-00

PATIENT
  Age: 68 Year
  Sex: Male

DRUGS (4)
  1. HUMIRA [Suspect]
     Indication: PSORIASIS
     Dates: start: 20130328, end: 20130328
  2. HUMIRA [Suspect]
     Dates: start: 20130404
  3. ATENOLOL [Concomitant]
     Indication: HYPERTENSION
  4. LOW DOSE ASPIRIN [Concomitant]
     Indication: PRODUCT USED FOR UNKNOWN INDICATION

REACTIONS (1)
  - Injection site mass [Not Recovered/Not Resolved]
